FAERS Safety Report 20264200 (Version 1)
Quarter: 2021Q4

REPORT INFORMATION
  Report Type: Spontaneous
  Country: CO (occurrence: CO)
  Receive Date: 20211231
  Receipt Date: 20211231
  Transmission Date: 20220303
  Serious: Yes (Death, Hospitalization, Other)
  Sender: FDA-Public Use
  Company Number: CO-AMGEN-COLSP2021204226

PATIENT

DRUGS (1)
  1. BEVACIZUMAB [Suspect]
     Active Substance: BEVACIZUMAB
     Indication: Rectal cancer
     Dosage: UNK
     Route: 065

REACTIONS (5)
  - Anastomotic leak [Unknown]
  - Death [Fatal]
  - Unevaluable event [Unknown]
  - Abdominal sepsis [Unknown]
  - Pelvic sepsis [Unknown]
